FAERS Safety Report 16570481 (Version 2)
Quarter: 2021Q4

REPORT INFORMATION
  Report Type: Spontaneous
  Country: CA (occurrence: CA)
  Receive Date: 20190715
  Receipt Date: 20211106
  Transmission Date: 20220303
  Serious: Yes (Hospitalization, Other)
  Sender: FDA-Public Use
  Company Number: CA-AUROBINDO-AUR-APL-2019-039007

PATIENT
  Age: 59 Year
  Sex: Male

DRUGS (9)
  1. ROSUVASTATIN [Suspect]
     Active Substance: ROSUVASTATIN
     Indication: Blood cholesterol abnormal
     Dosage: 10 MILLIGRAM, ONCE A DAY
     Route: 065
  2. SANDOSTATIN [Suspect]
     Active Substance: OCTREOTIDE ACETATE
     Indication: Adenoma benign
     Dosage: 20 MILLIGRAM, EVERY MONTH
     Route: 030
  3. VITAMIN B1 [Suspect]
     Active Substance: THIAMINE HYDROCHLORIDE
     Indication: Blood cholesterol abnormal
     Dosage: 100 MILLIGRAM, ONCE A DAY
     Route: 048
  4. ANDROGEL [Concomitant]
     Active Substance: TESTOSTERONE
     Indication: Product used for unknown indication
     Dosage: 2.5 GRAM, ONCE A DAY
     Route: 061
  5. BUPROPION HYDROBROMIDE [Concomitant]
     Active Substance: BUPROPION HYDROBROMIDE
     Indication: Product used for unknown indication
     Dosage: 150 MILLIGRAM, ONCE A DAY
     Route: 065
  6. DOSTINEX [Concomitant]
     Active Substance: CABERGOLINE
     Indication: Product used for unknown indication
     Dosage: 0.5 MILLIGRAM, ONE EVERY TWO WEEK
     Route: 065
  7. SILDENAFIL CITRATE [Concomitant]
     Active Substance: SILDENAFIL CITRATE
     Indication: Product used for unknown indication
     Dosage: 100 MILLIGRAM, UNK
     Route: 065
  8. SYNTHROID [Concomitant]
     Active Substance: LEVOTHYROXINE SODIUM
     Indication: Product used for unknown indication
     Dosage: 0.1 MILLIGRAM, ONCE A DAY
     Route: 065
  9. SYNTHROID [Concomitant]
     Active Substance: LEVOTHYROXINE SODIUM
     Dosage: 0.112 MILLIGRAM, ONCE A DAY
     Route: 065

REACTIONS (34)
  - Blood pressure increased [Recovered/Resolved]
  - Blood pressure systolic decreased [Recovered/Resolved]
  - Bloody discharge [Recovered/Resolved]
  - Body temperature decreased [Recovered/Resolved]
  - Depression [Recovered/Resolved]
  - Discomfort [Not Recovered/Not Resolved]
  - Dizziness [Recovered/Resolved]
  - Erythema [Recovered/Resolved]
  - Fall [Recovered/Resolved]
  - General physical condition abnormal [Recovered/Resolved]
  - Heart rate increased [Recovered/Resolved]
  - Hypersensitivity [Recovered/Resolved]
  - Hypoaesthesia [Not Recovered/Not Resolved]
  - Hypotension [Recovered/Resolved]
  - Induration [Recovered/Resolved]
  - Influenza [Recovered/Resolved]
  - Injection site pain [Not Recovered/Not Resolved]
  - Localised infection [Recovered/Resolved]
  - Mass [Recovered/Resolved]
  - Movement disorder [Recovered/Resolved]
  - Myalgia [Recovered/Resolved]
  - Pain in extremity [Recovered/Resolved]
  - Phlebitis [Recovered/Resolved]
  - Product use in unapproved indication [Recovered/Resolved]
  - Productive cough [Recovered/Resolved]
  - Pruritus [Recovered/Resolved]
  - Psoriasis [Recovered/Resolved]
  - Pyrexia [Recovered/Resolved]
  - Rhinorrhoea [Recovered/Resolved]
  - Skin disorder [Recovered/Resolved]
  - Skin laceration [Recovered/Resolved]
  - Skin plaque [Recovered/Resolved]
  - Tenderness [Recovered/Resolved]
  - Wound [Recovered/Resolved]
